FAERS Safety Report 9269390 (Version 2)
Quarter: 2013Q2

REPORT INFORMATION
  Report Type: Spontaneous
  Country: US (occurrence: US)
  Receive Date: 20130503
  Receipt Date: 20130515
  Transmission Date: 20140414
  Serious: No
  Sender: FDA-Public Use
  Company Number: US-VERTEX PHARMACEUTICALS INC-2013-005670

PATIENT
  Age: 33 Year
  Sex: Female
  Weight: 136 kg

DRUGS (4)
  1. INCIVEK [Suspect]
     Indication: HEPATITIS C
     Dosage: 750 MG, TID
     Route: 048
     Dates: start: 20130305, end: 20130430
  2. RIBAVIRIN [Suspect]
     Indication: HEPATITIS C
     Dosage: 600 MG, BID
     Dates: start: 20130305, end: 20130430
  3. PEGINTRON [Suspect]
     Indication: HEPATITIS C
     Dosage: 180, WEEKLY
     Route: 058
     Dates: start: 20130305, end: 20130430
  4. ORAL CONTRACEPTIVE NOS [Concomitant]

REACTIONS (1)
  - Pruritus [Not Recovered/Not Resolved]
